FAERS Safety Report 9748790 (Version 2)
Quarter: 2014Q2

REPORT INFORMATION
  Report Type: Spontaneous
  Country: US (occurrence: US)
  Receive Date: 20131212
  Receipt Date: 20140611
  Transmission Date: 20141212
  Serious: No
  Sender: FDA-Public Use
  Company Number: US-INCYTE CORPORATION-2013IN001902

PATIENT
  Age: 70 Year
  Sex: Female

DRUGS (8)
  1. JAKAFI [Suspect]
     Indication: POLYCYTHAEMIA VERA
     Dosage: 5 MG, BID
     Route: 048
     Dates: start: 20130801, end: 201308
  2. JAKAFI [Suspect]
     Dosage: 10 MG, BID
     Route: 048
     Dates: start: 20130830
  3. SYNTHROID [Concomitant]
  4. LORAZEPAM [Concomitant]
  5. NASONEX [Concomitant]
  6. ALLEGRA [Concomitant]
  7. ASPIRIN [Concomitant]
  8. HYDRA                              /00030201/ [Concomitant]

REACTIONS (6)
  - Platelet count increased [Not Recovered/Not Resolved]
  - White blood cell count increased [Unknown]
  - Drug administration error [Unknown]
  - Blood count abnormal [Unknown]
  - Headache [Recovered/Resolved]
  - Dizziness [Recovered/Resolved]
